FAERS Safety Report 4675884-2 (Version None)
Quarter: 2005Q2

REPORT INFORMATION
  Report Type: 
  Country: None (occurrence: None)
  Receive Date: 20050527
  Receipt Date: 20050517
  Transmission Date: 20051028
  Serious: Yes (Other)
  Sender: FDA-Public Use
  Company Number: BE-BRISTOL-MYERS SQUIBB COMPANY-12977237

PATIENT
  Age: 50 Year
  Sex: Male

DRUGS (2)
  1. CETUXIMAB [Suspect]
     Indication: NEOPLASM MALIGNANT
     Dosage: 1ST AND MOST RECENT INFUSION OF CETUXIMAB ON 06-MAY-2005.
     Route: 042
     Dates: start: 20050506
  2. GEFITINIB [Suspect]
     Indication: NEOPLASM MALIGNANT
     Dosage: 1ST DOSE ON 06-MAY-05. MOST RECENT DOSE ON 11-MAY-05.
     Dates: start: 20050506

REACTIONS (1)
  - DEAFNESS BILATERAL [None]
